FAERS Safety Report 13465385 (Version 2)
Quarter: 2017Q2

REPORT INFORMATION
  Report Type: Report from Study
  Country: CO (occurrence: CO)
  Receive Date: 20170421
  Receipt Date: 20170520
  Transmission Date: 20170830
  Serious: Yes (Hospitalization, Other)
  Sender: FDA-Public Use
  Company Number: CO-AMGEN-COLSL2017057740

PATIENT
  Age: 74 Year
  Sex: Male

DRUGS (1)
  1. KYPROLIS [Suspect]
     Active Substance: CARFILZOMIB
     Indication: PLASMA CELL MYELOMA
     Dosage: UNK UNK, QWK
     Route: 042
     Dates: start: 20161014, end: 20170327

REACTIONS (10)
  - Organ failure [Unknown]
  - Treatment failure [Not Recovered/Not Resolved]
  - Dehydration [Recovered/Resolved]
  - Toxicity to various agents [Unknown]
  - Off label use [Unknown]
  - Spinal fracture [Not Recovered/Not Resolved]
  - Vomiting [Recovered/Resolved]
  - Metastases to spine [Unknown]
  - Diarrhoea [Recovered/Resolved]
  - Plasma cell myeloma [Not Recovered/Not Resolved]

NARRATIVE: CASE EVENT DATE: 2017
